FAERS Safety Report 5669983-6 (Version None)
Quarter: 2008Q1

REPORT INFORMATION
  Report Type: 
  Country: None (occurrence: None)
  Receive Date: 20080312
  Receipt Date: 20080229
  Transmission Date: 20080703
  Serious: Yes (Death, Other)
  Sender: FDA-Public Use
  Company Number: 2007-04359

PATIENT
  Age: 55 Year
  Sex: Male
  Weight: 73 kg

DRUGS (13)
  1. VELCADE [Suspect]
     Indication: MULTIPLE MYELOMA
     Dosage: 2.30 MG, INTRAVENOUS
     Route: 042
     Dates: start: 20070921, end: 20071001
  2. DEXAMETHASONE TAB [Concomitant]
  3. SUCRALFATE [Concomitant]
  4. ITRACONAZOLE [Concomitant]
  5. OMEPRAL (OMEPRAZOLE) [Concomitant]
  6. URSO 250 [Concomitant]
  7. LEVOFLOXACIN [Concomitant]
  8. NIFEDIPINE [Concomitant]
  9. BAKTAR (SULFAMETHOXAZOLE, TRIMETHOPRIM) [Concomitant]
  10. NATEGLINIDE [Concomitant]
  11. CANDESARTAN CILEXETIL [Concomitant]
  12. ZOMETA [Concomitant]
  13. PLATELETS [Concomitant]

REACTIONS (6)
  - HYPERGLYCAEMIA [None]
  - HYPONATRAEMIA [None]
  - MALIGNANT NEOPLASM PROGRESSION [None]
  - MULTIPLE MYELOMA [None]
  - NEUROPATHY PERIPHERAL [None]
  - SUPRAVENTRICULAR EXTRASYSTOLES [None]
